FAERS Safety Report 6979582-1 (Version None)
Quarter: 2010Q3

REPORT INFORMATION
  Report Type: 
  Country: None (occurrence: None)
  Receive Date: 20100910
  Receipt Date: 20100910
  Transmission Date: 20110219
  Serious: No
  Sender: FDA-Public Use
  Company Number: None

PATIENT
  Sex: Female
  Weight: 80.9 kg

DRUGS (4)
  1. ENOXAPARIN SODIUM [Suspect]
     Indication: PULMONARY EMBOLISM
     Dosage: 80MG Q12H SUBCUTANEOUS
     Route: 058
     Dates: start: 20100428
  2. ENOXAPARIN SODIUM [Suspect]
     Indication: THROMBOSIS PROPHYLAXIS
     Dosage: 80MG Q12H SUBCUTANEOUS
     Route: 058
     Dates: start: 20100428
  3. ENOXAPARIN SODIUM [Suspect]
     Indication: PULMONARY EMBOLISM
     Dosage: 80MG Q12H SUBCUTANEOUS
     Route: 058
     Dates: start: 20100511
  4. ENOXAPARIN SODIUM [Suspect]
     Indication: THROMBOSIS PROPHYLAXIS
     Dosage: 80MG Q12H SUBCUTANEOUS
     Route: 058
     Dates: start: 20100511

REACTIONS (3)
  - ECZEMA [None]
  - INJECTION SITE REACTION [None]
  - SKIN PLAQUE [None]
